FAERS Safety Report 16700411 (Version 9)
Quarter: 2019Q4

REPORT INFORMATION
  Report Type: Spontaneous
  Country: ES (occurrence: ES)
  Receive Date: 20190814
  Receipt Date: 20191111
  Transmission Date: 20200122
  Serious: Yes (Other)
  Sender: FDA-Public Use
  Company Number: ES-SA-2019SA215255

PATIENT
  Age: 38 Year
  Sex: Female

DRUGS (9)
  1. DILIBAN [Concomitant]
     Active Substance: ACETAMINOPHEN\TRAMADOL HYDROCHLORIDE
     Dosage: 1 DF, Q12H
     Route: 065
  2. PREGABALIN. [Concomitant]
     Active Substance: PREGABALIN
     Indication: NEURALGIA
     Dosage: 75 MG, Q12H
     Route: 048
  3. METHYLPREDNISOLONE. [Concomitant]
     Active Substance: METHYLPREDNISOLONE
     Dosage: 1 G, QD
     Route: 042
     Dates: start: 20190809, end: 20190813
  4. LEMTRADA [Suspect]
     Active Substance: ALEMTUZUMAB
     Dosage: 12 MG, QD
     Route: 041
     Dates: start: 20180514, end: 20180516
  5. PREGABALIN. [Concomitant]
     Active Substance: PREGABALIN
     Dosage: 150 UNK
  6. PREDNISONE. [Concomitant]
     Active Substance: PREDNISONE
     Dosage: UNK UNK, UNK
     Route: 065
  7. LEMTRADA [Suspect]
     Active Substance: ALEMTUZUMAB
     Dosage: 12 MG, QD
     Route: 041
     Dates: start: 20170116, end: 20170118
  8. VITAMIN D [VITAMIN D NOS] [Concomitant]
     Active Substance: VITAMIN D NOS
     Indication: SUPPLEMENTATION THERAPY
     Dosage: 25000 IU, QM
     Route: 048
  9. LEMTRADA [Suspect]
     Active Substance: ALEMTUZUMAB
     Indication: RELAPSING-REMITTING MULTIPLE SCLEROSIS
     Dosage: 12 MG, QD
     Route: 041
     Dates: start: 20160118, end: 20160122

REACTIONS (17)
  - CD8 lymphocyte percentage decreased [Unknown]
  - Genital hypoaesthesia [Unknown]
  - Visual field defect [Unknown]
  - Multiple sclerosis [Not Recovered/Not Resolved]
  - Rubella antibody positive [Unknown]
  - CD4 lymphocyte percentage decreased [Unknown]
  - Optic neuritis [Unknown]
  - Spinal cord disorder [Recovering/Resolving]
  - Demyelination [Unknown]
  - Hepatitis B antibody abnormal [Unknown]
  - Multiple sclerosis relapse [Unknown]
  - Micturition urgency [Unknown]
  - Central nervous system lesion [Recovered/Resolved]
  - B-lymphocyte count increased [Unknown]
  - Urinary incontinence [Unknown]
  - Hypoaesthesia [Unknown]
  - Drug ineffective [Unknown]

NARRATIVE: CASE EVENT DATE: 2019
